FAERS Safety Report 23854889 (Version 2)
Quarter: 2024Q3

REPORT INFORMATION
  Report Type: Spontaneous
  Country: US (occurrence: US)
  Receive Date: 20240514
  Receipt Date: 20240812
  Transmission Date: 20241017
  Serious: No
  Sender: ANI
  Company Number: US-ANIPHARMA-2024-US-019234

PATIENT
  Age: 73 Year
  Sex: Female

DRUGS (1)
  1. CORTICOTROPIN [Suspect]
     Active Substance: CORTICOTROPIN
     Indication: Gout
     Dosage: INJECT 80 UNITS (1ML) SUBCUTANEOUSLY DAILY AS NEEDED AS DIRECTED. *DISCARD 28 DAYS AFTER FIRST
     Route: 058
     Dates: start: 202312

REACTIONS (4)
  - Head injury [Unknown]
  - Contraindicated product administered [Not Recovered/Not Resolved]
  - Gout [Not Recovered/Not Resolved]
  - Product dose omission issue [Unknown]

NARRATIVE: CASE EVENT DATE: 20231201
